FAERS Safety Report 4268589-3 (Version None)
Quarter: 2004Q1

REPORT INFORMATION
  Report Type: 
  Country: None (occurrence: None)
  Receive Date: 20040112
  Receipt Date: 20031215
  Transmission Date: 20041129
  Serious: Yes (Other)
  Sender: FDA-Public Use
  Company Number: US-GLAXOSMITHKLINE-A0443216A

PATIENT
  Age: 3 Year
  Sex: Female
  Weight: 14.3 kg

DRUGS (4)
  1. GW433908 [Concomitant]
     Indication: HIV INFECTION
     Dosage: 11.2ML PER DAY
     Route: 048
     Dates: start: 20030308, end: 20031212
  2. RITONAVIR [Suspect]
     Indication: HIV INFECTION
     Dosage: 1.4ML PER DAY
     Route: 048
     Dates: start: 20030308, end: 20031212
  3. ABACAVIR [Concomitant]
     Indication: HIV INFECTION
     Dosage: 120MG TWICE PER DAY
     Route: 048
     Dates: start: 20030308, end: 20031212
  4. RETROVIR [Concomitant]
     Indication: HIV INFECTION
     Dosage: 100MG TWICE PER DAY
     Route: 048
     Dates: start: 20030308, end: 20031212

REACTIONS (2)
  - 5'NUCLEOTIDASE INCREASED [None]
  - BLOOD ALKALINE PHOSPHATASE INCREASED [None]
